FAERS Safety Report 25706091 (Version 1)
Quarter: 2025Q3

REPORT INFORMATION
  Report Type: Spontaneous
  Country: GB (occurrence: GB)
  Receive Date: 20250820
  Receipt Date: 20250820
  Transmission Date: 20251021
  Serious: Yes (Other)
  Sender: Haleon PLC
  Company Number: None

PATIENT
  Age: 80 Year
  Sex: Female

DRUGS (22)
  1. IBUPROFEN [Suspect]
     Active Substance: IBUPROFEN
     Indication: Arthralgia
     Dosage: DAILY FOR THE PAST 2/52
  2. ACETAMINOPHEN [Concomitant]
     Active Substance: ACETAMINOPHEN
     Indication: Product used for unknown indication
  3. ACETAMINOPHEN [Concomitant]
     Active Substance: ACETAMINOPHEN
     Dosage: REPEATS 12-JUN-2025. 500 MG TABLETS TWO TABLETS TO BE TAKEN FOUR TIMES A DAY-TAKES PRN
  4. ACETAMINOPHEN [Concomitant]
     Active Substance: ACETAMINOPHEN
  5. ESCITALOPRAM [Concomitant]
     Active Substance: ESCITALOPRAM OXALATE
     Indication: Product used for unknown indication
  6. MORPHINE SULFATE [Concomitant]
     Active Substance: MORPHINE SULFATE
     Indication: Dyspnoea
  7. ALBUTEROL [Concomitant]
     Active Substance: ALBUTEROL
     Indication: Product used for unknown indication
  8. ALBUTEROL [Concomitant]
     Active Substance: ALBUTEROL
  9. Sodium cromoglicate + Salbutamol [Concomitant]
     Indication: Product used for unknown indication
  10. LEVOCETIRIZINE [Concomitant]
     Active Substance: LEVOCETIRIZINE
     Indication: Product used for unknown indication
  11. CITALOPRAM [Concomitant]
     Active Substance: CITALOPRAM
     Indication: Product used for unknown indication
     Dosage: REPEATS 12-JUN-2025. 10 MG TABLETS ONE TO BE TAKEN EACH DAY
  12. ACETAMINOPHEN\TRAMADOL [Concomitant]
     Active Substance: ACETAMINOPHEN\TRAMADOL
     Indication: Product used for unknown indication
  13. ACETAMINOPHEN\ASPIRIN [Concomitant]
     Active Substance: ACETAMINOPHEN\ASPIRIN
     Indication: Product used for unknown indication
  14. ZOPICLONE [Concomitant]
     Active Substance: ZOPICLONE
     Indication: Product used for unknown indication
     Dosage: REPEATS 12-JUN-2025.  3.75 MG TABLETS ONE TO BE TAKEN AT NIGHT-TAKES EVERY NIGHT
  15. CETIRIZINE [Concomitant]
     Active Substance: CETIRIZINE HYDROCHLORIDE
     Indication: Product used for unknown indication
     Dosage: REPEATS 12-JUN-2025. 10 MG TABLETS ONE TO BE TAKEN EACH DAY
  16. FELODIPINE [Suspect]
     Active Substance: FELODIPINE
     Indication: Product used for unknown indication
     Dosage: REPEATS 12-JUN-2025.  ONE TO BE TAKEN EACH MORNING
  17. Dihydrocodeine + Paracetamol [Concomitant]
     Indication: Product used for unknown indication
  18. ASPIRIN [Suspect]
     Active Substance: ASPIRIN
     Indication: Product used for unknown indication
     Dosage: REPEATS 12-JUN-2025.  SUSPENDED- ULCERS
  19. ATORVASTATIN [Concomitant]
     Active Substance: ATORVASTATIN
     Indication: Product used for unknown indication
     Dosage: REPEATS 12-JUN-2025. 80 MG TABLETS ONE TO BE TAKEN EACH DAY-ON
  20. BECLOMETHASONE DIPROPIONATE\FORMOTEROL FUMARATE\GLYCOPYRROLATE [Concomitant]
     Active Substance: BECLOMETHASONE DIPROPIONATE\FORMOTEROL FUMARATE\GLYCOPYRROLATE
     Indication: Product used for unknown indication
     Dosage: REPEATS 09-MAY-2025. 87 / 5 / 9 MICROGRAMS / DOSE INHALER TWO PUFFS TO BE INHALED TWICE A DAY
  21. ALBUTEROL [Concomitant]
     Active Substance: ALBUTEROL
     Indication: Product used for unknown indication
     Dosage: REPEATS 12-JUN-2025. 100 MICROGRAMS / DOSE INHALER CFC FREE ONE OR TWO PUFFS TO BE INHALED UP TO ...
  22. ALENDRONIC ACID [Concomitant]
     Active Substance: ALENDRONIC ACID
     Indication: Product used for unknown indication
     Dosage: REPEATS 12-JUN-2025. 70 MG TABLETS TAKE ONE TABLET WEEKLY -PLEASE READ INSTRUCTIONS ON WHEN TO TA...

REACTIONS (3)
  - Melaena [Unknown]
  - Haematemesis [Unknown]
  - Ulcer [Unknown]
